FAERS Safety Report 9681256 (Version 1)
Quarter: 2013Q4

REPORT INFORMATION
  Report Type: Spontaneous
  Country: EG (occurrence: EG)
  Receive Date: 20131111
  Receipt Date: 20131111
  Transmission Date: 20140711
  Serious: Yes (Other)
  Sender: FDA-Public Use
  Company Number: EG-B.I. PHARMACEUTICALS,INC./RIDGEFIELD-2013-BI-36608ET

PATIENT
  Age: 68 Year
  Sex: 0

DRUGS (3)
  1. PRADAXA [Suspect]
     Indication: ATRIAL FIBRILLATION
     Dosage: 220 MG
     Route: 048
  2. TAVANIC 1GM [Concomitant]
  3. DICLOFENAC 50MG [Concomitant]

REACTIONS (3)
  - Pulmonary embolism [Unknown]
  - Haemorrhage [Unknown]
  - Blood pressure decreased [Unknown]
